FAERS Safety Report 10368895 (Version 1)
Quarter: 2014Q3

REPORT INFORMATION
  Report Type: Spontaneous
  Country: ES (occurrence: ES)
  Receive Date: 20140807
  Receipt Date: 20140807
  Transmission Date: 20150326
  Serious: Yes (Other)
  Sender: FDA-Public Use
  Company Number: ES-BAYER-2014-116418

PATIENT
  Age: 33 Year
  Sex: Female

DRUGS (3)
  1. ACETYLSALICYLIC ACID (} 100 MG) [Suspect]
     Active Substance: ASPIRIN
  2. ENOXAPARIN [Suspect]
     Active Substance: ENOXAPARIN
     Dosage: UNK
  3. ENOXAPARIN [Suspect]
     Active Substance: ENOXAPARIN
     Dosage: UNK

REACTIONS (4)
  - Hypertension [None]
  - Maternal exposure during pregnancy [None]
  - Abortion spontaneous [None]
  - Dermatitis allergic [None]
